FAERS Safety Report 7617792-0 (Version None)
Quarter: 2011Q3

REPORT INFORMATION
  Report Type: 
  Country: None (occurrence: None)
  Receive Date: 20110718
  Receipt Date: 20110714
  Transmission Date: 20111222
  Serious: Yes (Other)
  Sender: FDA-Public Use
  Company Number: GB-TEVA-282688ISR

PATIENT
  Age: 50 Year
  Sex: Male

DRUGS (4)
  1. ROSIGLITAZONE [Interacting]
  2. FENOFIBRATE [Interacting]
  3. SIMVASTATIN [Suspect]
  4. ATORVASTATIN [Interacting]

REACTIONS (2)
  - HIGH DENSITY LIPOPROTEIN DECREASED [None]
  - DRUG INTERACTION [None]
